FAERS Safety Report 8030774-2 (Version None)
Quarter: 2012Q1

REPORT INFORMATION
  Report Type: 
  Country: None (occurrence: None)
  Receive Date: 20120109
  Receipt Date: 20120105
  Transmission Date: 20120608
  Serious: Yes (Hospitalization)
  Sender: FDA-Public Use
  Company Number: KR-ELI_LILLY_AND_COMPANY-KR200904001643

PATIENT
  Sex: Male
  Weight: 71 kg

DRUGS (12)
  1. FOLIC ACID [Concomitant]
     Indication: PROPHYLAXIS
     Dosage: 1 MG, UNK
     Route: 048
     Dates: start: 20070828, end: 20071026
  2. MYOTONINE [Concomitant]
  3. ATACAND [Concomitant]
     Indication: HYPERTENSION
  4. PEMETREXED [Suspect]
     Indication: NON-SMALL CELL LUNG CANCER
     Dosage: 500 MG/M2 (950MG), UNK
     Route: 042
     Dates: start: 20070904
  5. CYTOTEC [Concomitant]
     Indication: PROPHYLAXIS AGAINST GASTROINTESTINAL ULCER
  6. ALFUZOSIN HYDROCHLORIDE [Concomitant]
  7. DEXAMETHASONE [Concomitant]
     Indication: PROPHYLAXIS
     Dosage: 4 MG, UNK
     Route: 048
     Dates: start: 20070828, end: 20071026
  8. FELODIPINE [Concomitant]
     Indication: HYPERTENSION
  9. PEMETREXED [Suspect]
     Dosage: 900 MG, UNK
     Route: 042
     Dates: start: 20071023
  10. OXYCONTIN [Concomitant]
     Indication: PAIN
  11. VITAMIN B-12 [Concomitant]
     Indication: PROPHYLAXIS
     Dosage: 1 MG, UNK
     Route: 030
     Dates: start: 20070828, end: 20070828
  12. TAGAMET [Concomitant]

REACTIONS (1)
  - NEOPLASM PROGRESSION [None]
